FAERS Safety Report 5583146-4 (Version None)
Quarter: 2008Q1

REPORT INFORMATION
  Report Type: 
  Country: None (occurrence: None)
  Receive Date: 20080103
  Receipt Date: 20080103
  Transmission Date: 20080703
  Serious: Yes (Hospitalization, Disabling)
  Sender: FDA-Public Use
  Company Number: None

PATIENT
  Age: 16 Year
  Sex: Male
  Weight: 79.3795 kg

DRUGS (1)
  1. MINOCYCLINE   100MG   TEV [Suspect]
     Indication: ACNE
     Dosage: 100MG  BID  PO
     Route: 048
     Dates: start: 20070810, end: 20071227

REACTIONS (1)
  - BENIGN INTRACRANIAL HYPERTENSION [None]
